FAERS Safety Report 13821911 (Version 1)
Quarter: 2017Q3

REPORT INFORMATION
  Report Type: Spontaneous
  Country: CA (occurrence: CA)
  Receive Date: 20170801
  Receipt Date: 20170801
  Transmission Date: 20171127
  Serious: Yes (Other)
  Sender: FDA-Public Use
  Company Number: CA-BAYER-2017-118263

PATIENT
  Sex: Female

DRUGS (2)
  1. MIRENA [Suspect]
     Active Substance: LEVONORGESTREL
     Indication: DYSMENORRHOEA
     Dosage: 20 MCG/24HR, CONT
     Route: 015
     Dates: start: 20170302
  2. MIRENA [Suspect]
     Active Substance: LEVONORGESTREL
     Indication: MENORRHAGIA
     Dosage: 20 MCG/24HR, CONT
     Route: 015
     Dates: start: 2013

REACTIONS (24)
  - Fatigue [Recovered/Resolved]
  - Uterine enlargement [Recovered/Resolved]
  - Vertigo [Recovered/Resolved]
  - Panic attack [Recovered/Resolved]
  - Mood swings [Recovered/Resolved]
  - Loss of consciousness [Recovered/Resolved]
  - Genital haemorrhage [Recovered/Resolved]
  - Angina pectoris [Recovered/Resolved]
  - Abdominal pain [Recovered/Resolved]
  - Appetite disorder [Recovered/Resolved]
  - Weight increased [Recovered/Resolved]
  - Asthenia [Not Recovered/Not Resolved]
  - Depression [Recovered/Resolved]
  - Menometrorrhagia [None]
  - Asthenia [Recovered/Resolved]
  - Arthralgia [Recovered/Resolved]
  - Adverse event [Recovered/Resolved]
  - Mood altered [Recovered/Resolved]
  - Dyspnoea [Recovered/Resolved]
  - Cervix inflammation [Recovered/Resolved]
  - Vaginal discharge [None]
  - Hypoaesthesia [Recovered/Resolved]
  - Visual impairment [Recovered/Resolved]
  - Disturbance in attention [Recovered/Resolved]
